FAERS Safety Report 17760866 (Version 1)
Quarter: 2020Q2

REPORT INFORMATION
  Report Type: Report from Study
  Country: US (occurrence: US)
  Receive Date: 20200508
  Receipt Date: 20200508
  Transmission Date: 20200714
  Serious: No
  Sender: FDA-Public Use
  Company Number: NVSC2020US125099

PATIENT
  Age: 29 Year
  Sex: Male

DRUGS (1)
  1. ENTRESTO [Suspect]
     Active Substance: SACUBITRIL\VALSARTAN
     Indication: CARDIAC FAILURE
     Dosage: 97 MG, ONCE2SDO
     Route: 048
     Dates: start: 202001

REACTIONS (3)
  - Cough [Unknown]
  - Hypersensitivity [Unknown]
  - Throat clearing [Unknown]

NARRATIVE: CASE EVENT DATE: 20200506
